FAERS Safety Report 7459007-2 (Version None)
Quarter: 2011Q2

REPORT INFORMATION
  Report Type: 
  Country: None (occurrence: None)
  Receive Date: 20110505
  Receipt Date: 20110426
  Transmission Date: 20111010
  Serious: Yes (Hospitalization)
  Sender: FDA-Public Use
  Company Number: US-BIOGENIDEC-2011BI008257

PATIENT
  Age: 39 Year
  Sex: Female

DRUGS (1)
  1. TYSABRI [Suspect]
     Indication: CROHN'S DISEASE
     Route: 042
     Dates: start: 20100701

REACTIONS (6)
  - KIDNEY INFECTION [None]
  - SENSATION OF PRESSURE [None]
  - BLOOD URIC ACID DECREASED [None]
  - NERVE COMPRESSION [None]
  - CALCINOSIS [None]
  - NEPHROLITHIASIS [None]
